FAERS Safety Report 14499409 (Version 1)
Quarter: 2018Q1

REPORT INFORMATION
  Report Type: Spontaneous
  Country: US (occurrence: US)
  Receive Date: 20180207
  Receipt Date: 20180207
  Transmission Date: 20180509
  Serious: Yes (Hospitalization)
  Sender: FDA-Public Use
  Company Number: US-VIFOR (INTERNATIONAL) INC.-VIT-2018-01203

PATIENT
  Sex: Male

DRUGS (8)
  1. VELTASSA [Suspect]
     Active Substance: PATIROMER
     Indication: HYPERKALAEMIA
  2. CIPROFLOXACIN HYDROCHLORIDE. [Concomitant]
     Active Substance: CIPROFLOXACIN HYDROCHLORIDE
  3. SODIUM BICARBONATE. [Concomitant]
     Active Substance: SODIUM BICARBONATE
  4. FLOMAX [Concomitant]
     Active Substance: TAMSULOSIN HYDROCHLORIDE
  5. CALCITRIOL. [Concomitant]
     Active Substance: CALCITRIOL
  6. ASCORBIC ACID~~PYRIDOXINE HYDROCHLORIDE~~BIOTIN~~TOCOPHEROL~~FOLIC ACID~~THIAMINE HYDROCHLORIDE~~COL [Concomitant]
  7. FERROUS SULFATE. [Concomitant]
     Active Substance: FERROUS SULFATE
  8. ACETYLSALICYLIC ACID [Concomitant]
     Active Substance: ASPIRIN

REACTIONS (1)
  - Hospitalisation [Unknown]
